FAERS Safety Report 23093284 (Version 1)
Quarter: 2023Q4

REPORT INFORMATION
  Report Type: Spontaneous
  Country: US (occurrence: US)
  Receive Date: 20231022
  Receipt Date: 20231022
  Transmission Date: 20240110
  Serious: No
  Sender: FDA-Public Use
  Company Number: US-SANOFI-01803013

PATIENT
  Age: 67 Year
  Sex: Male

DRUGS (1)
  1. DUPIXENT [Suspect]
     Active Substance: DUPILUMAB
     Indication: Nasal polyps
     Dosage: 300 MG, QOW
     Dates: start: 202308

REACTIONS (6)
  - Oropharyngeal pain [Unknown]
  - Nasopharyngitis [Unknown]
  - Insomnia [Unknown]
  - Pruritus [Recovered/Resolved]
  - Injection site pruritus [Recovered/Resolved]
  - Rash [Unknown]
